FAERS Safety Report 19585383 (Version 1)
Quarter: 2021Q3

REPORT INFORMATION
  Report Type: Spontaneous
  Country: US (occurrence: US)
  Receive Date: 20210721
  Receipt Date: 20210721
  Transmission Date: 20211014
  Serious: No
  Sender: FDA-Public Use
  Company Number: US-ASTRAZENECA-2021A552343

PATIENT
  Age: 21669 Day
  Sex: Female
  Weight: 122.5 kg

DRUGS (1)
  1. BYDUREON BCISE [Suspect]
     Active Substance: EXENATIDE
     Indication: TYPE 2 DIABETES MELLITUS
     Route: 058
     Dates: start: 20210621

REACTIONS (7)
  - Injury associated with device [Not Recovered/Not Resolved]
  - Intentional device misuse [Unknown]
  - Wrong technique in device usage process [Unknown]
  - Incorrect dose administered by device [Unknown]
  - Dementia Alzheimer^s type [Not Recovered/Not Resolved]
  - Neoplasm progression [Unknown]
  - Needle issue [Unknown]

NARRATIVE: CASE EVENT DATE: 20210621
